FAERS Safety Report 14197135 (Version 1)
Quarter: 2017Q4

REPORT INFORMATION
  Report Type: Spontaneous
  Country: US (occurrence: US)
  Receive Date: 20171116
  Receipt Date: 20171116
  Transmission Date: 20180321
  Serious: Yes (Death, Hospitalization)
  Sender: FDA-Public Use
  Company Number: US-ALLERGAN-1764696US

PATIENT
  Age: 79 Year
  Sex: Male
  Weight: 102.5 kg

DRUGS (2)
  1. HYDROCODONE BITARTRATE;ACETAMINOPHEN UNK [Suspect]
     Active Substance: ACETAMINOPHEN\HYDROCODONE BITARTRATE
     Indication: PAIN
     Dosage: 10 MG, Q4HR, PRN
     Route: 048
     Dates: start: 20160405
  2. NIVOLUMAB [Suspect]
     Active Substance: NIVOLUMAB
     Indication: DIFFUSE LARGE B-CELL LYMPHOMA
     Dosage: 240 MG, Q WEEK
     Route: 042
     Dates: start: 20160414, end: 20160502

REACTIONS (3)
  - Lactic acidosis [Not Recovered/Not Resolved]
  - Disease progression [Fatal]
  - Encephalopathy [Not Recovered/Not Resolved]

NARRATIVE: CASE EVENT DATE: 20160501
